FAERS Safety Report 14264907 (Version 1)
Quarter: 2017Q4

REPORT INFORMATION
  Report Type: Spontaneous
  Country: IT (occurrence: IT)
  Receive Date: 20171208
  Receipt Date: 20171208
  Transmission Date: 20180321
  Serious: Yes (Other)
  Sender: FDA-Public Use
  Company Number: IT-SA-2017SA241314

PATIENT

DRUGS (2)
  1. CAMPATH [Suspect]
     Active Substance: ALEMTUZUMAB
     Route: 041
     Dates: start: 20170502, end: 20170628
  2. CAMPATH [Suspect]
     Active Substance: ALEMTUZUMAB
     Route: 041
     Dates: start: 20170221, end: 20170322

REACTIONS (6)
  - Fatigue [Unknown]
  - Weight decreased [Unknown]
  - Beta 2 microglobulin increased [Unknown]
  - White blood cell count increased [Unknown]
  - Cytomegalovirus infection [Unknown]
  - Haemoglobin decreased [Unknown]

NARRATIVE: CASE EVENT DATE: 20170322
